FAERS Safety Report 7809833-2 (Version None)
Quarter: 2011Q4

REPORT INFORMATION
  Report Type: 
  Country: None (occurrence: None)
  Receive Date: 20111012
  Receipt Date: 20111006
  Transmission Date: 20120403
  Serious: Yes (Hospitalization)
  Sender: FDA-Public Use
  Company Number: US-GILEAD-2011-0044521

PATIENT

DRUGS (2)
  1. LETAIRIS [Suspect]
     Indication: PRODUCT USED FOR UNKNOWN INDICATION
     Dosage: 5 MG, UNK
     Route: 048
     Dates: start: 20110913, end: 20111006
  2. REVATIO [Concomitant]

REACTIONS (4)
  - HOT FLUSH [None]
  - MIGRAINE [None]
  - DIZZINESS [None]
  - NAUSEA [None]
